FAERS Safety Report 7642933-9 (Version None)
Quarter: 2011Q3

REPORT INFORMATION
  Report Type: 
  Country: None (occurrence: None)
  Receive Date: 20110728
  Receipt Date: 20110722
  Transmission Date: 20111222
  Serious: Yes (Death, Hospitalization)
  Sender: FDA-Public Use
  Company Number: US-BAXTER-2011BH021394

PATIENT
  Age: 58 Year
  Sex: Male
  Weight: 73 kg

DRUGS (14)
  1. AMBIEN [Concomitant]
     Indication: SLEEP DISORDER
     Route: 048
  2. CYCLOBENZAPRINE [Concomitant]
     Indication: PRODUCT USED FOR UNKNOWN INDICATION
     Route: 048
     Dates: start: 20100924
  3. CALCIUM CARBONATE W/CHOLECALCIFEROL/SODIUM [Concomitant]
     Indication: PRODUCT USED FOR UNKNOWN INDICATION
     Route: 048
  4. IFOSFAMIDE [Suspect]
     Indication: TESTIS CANCER
     Route: 042
     Dates: start: 20110624, end: 20110628
  5. ATENOLOL [Concomitant]
     Indication: PRODUCT USED FOR UNKNOWN INDICATION
     Route: 048
  6. GABAPENTIN [Concomitant]
     Indication: PRODUCT USED FOR UNKNOWN INDICATION
     Route: 048
  7. DEXAMETHASONE [Concomitant]
     Indication: PRODUCT USED FOR UNKNOWN INDICATION
     Route: 048
  8. NORCO [Concomitant]
     Indication: PRODUCT USED FOR UNKNOWN INDICATION
     Route: 065
  9. PANTOPRAZOLE SODIUM [Concomitant]
     Indication: PRODUCT USED FOR UNKNOWN INDICATION
     Route: 048
  10. ONDANSETRON [Concomitant]
     Indication: PROPHYLAXIS OF NAUSEA AND VOMITING
     Route: 048
  11. CISPLATIN [Concomitant]
     Indication: TESTIS CANCER
     Route: 042
     Dates: start: 20110624, end: 20110628
  12. MORPHINE [Concomitant]
     Indication: PRODUCT USED FOR UNKNOWN INDICATION
     Route: 048
  13. APREPITANT [Concomitant]
     Indication: PROPHYLAXIS OF NAUSEA AND VOMITING
     Route: 065
     Dates: start: 20110624
  14. VINBLASTINE SULFATE [Concomitant]
     Indication: TESTIS CANCER
     Route: 042
     Dates: start: 20110624, end: 20110628

REACTIONS (3)
  - DISORIENTATION [None]
  - RESTLESSNESS [None]
  - DEATH [None]
